FAERS Safety Report 5364796-7 (Version None)
Quarter: 2007Q2

REPORT INFORMATION
  Report Type: 
  Country: None (occurrence: None)
  Receive Date: 20070621
  Receipt Date: 20070611
  Transmission Date: 20071010
  Serious: Yes (Hospitalization)
  Sender: FDA-Public Use
  Company Number: PHRM2007FR01606

PATIENT
  Age: 16 Year
  Sex: Female
  Weight: 78 kg

DRUGS (9)
  1. SOLU-MEDROL [Suspect]
     Indication: BONE MARROW TRANSPLANT
     Dosage: 25 MG, TID
     Route: 042
     Dates: start: 20070416, end: 20070426
  2. SOLU-MEDROL [Suspect]
     Dosage: 30 MG, BID
     Route: 042
     Dates: start: 20070427
  3. PENTACARINAT [Suspect]
     Dosage: TOTAL DOSAGE : 1 DF
     Dates: start: 20070416
  4. NEORAL [Suspect]
     Indication: BONE MARROW TRANSPLANT
     Dosage: 240 MG PER DAY
     Route: 048
     Dates: start: 20070407, end: 20070409
  5. NEORAL [Suspect]
     Dosage: 120 MG DAILY
     Route: 048
     Dates: start: 20070410, end: 20070415
  6. NEORAL [Suspect]
     Dosage: 100 MG DAILY
     Dates: start: 20070416, end: 20070417
  7. NEORAL [Suspect]
     Dosage: 80 MG DAILY
     Route: 048
     Dates: start: 20070418, end: 20070423
  8. NEORAL [Suspect]
     Dosage: 70 MG PER DAY
     Route: 048
     Dates: start: 20070424, end: 20070426
  9. NEORAL [Suspect]
     Dosage: 80 MG DAILY
     Route: 048
     Dates: start: 20070427, end: 20070428

REACTIONS (3)
  - CONVULSION [None]
  - HYPERGLYCAEMIA [None]
  - PROTEINURIA [None]
